FAERS Safety Report 14045040 (Version 1)
Quarter: 2017Q4

REPORT INFORMATION
  Report Type: Spontaneous
  Country: US (occurrence: US)
  Receive Date: 20171005
  Receipt Date: 20171005
  Transmission Date: 20180321
  Serious: Yes (Other)
  Sender: FDA-Public Use
  Company Number: US-DIAGNOSTIC GREEN GMBH-2028859

PATIENT
  Age: 64 Year
  Sex: Male

DRUGS (5)
  1. INDOCYANINE GREEN FOR INJECTION USP, 25 MG [Suspect]
     Active Substance: INDOCYANINE GREEN
     Indication: VITRECTOMY
     Route: 031
     Dates: start: 20170905
  2. TRIAMCINOLONE [Concomitant]
     Active Substance: TRIAMCINOLONE
  3. PERFLUOROPROPANE [Concomitant]
     Active Substance: PERFLUTREN
  4. LOCAL ANAESTHETIC [Concomitant]
  5. VANCOMYCIN [Concomitant]
     Active Substance: VANCOMYCIN

REACTIONS (1)
  - Endophthalmitis [Unknown]

NARRATIVE: CASE EVENT DATE: 201709
